FAERS Safety Report 4737903-4 (Version None)
Quarter: 2005Q3

REPORT INFORMATION
  Report Type: 
  Country: None (occurrence: None)
  Receive Date: 20050809
  Receipt Date: 20050728
  Transmission Date: 20060218
  Serious: Yes (Death, Other)
  Sender: FDA-Public Use
  Company Number: US-JNJFOC-20031203206

PATIENT
  Sex: Male

DRUGS (33)
  1. REMICADE [Suspect]
     Route: 042
  2. REMICADE [Suspect]
     Route: 042
  3. REMICADE [Suspect]
     Route: 042
  4. REMICADE [Suspect]
     Route: 042
  5. REMICADE [Suspect]
     Route: 042
  6. REMICADE [Suspect]
     Route: 042
  7. REMICADE [Suspect]
     Indication: RHEUMATOID ARTHRITIS
     Route: 042
  8. METHOTREXATE [Suspect]
     Indication: RHEUMATOID ARTHRITIS
  9. PREDNISONE [Concomitant]
     Indication: RHEUMATOID ARTHRITIS
  10. SULFASALAZINE [Concomitant]
     Indication: RHEUMATOID ARTHRITIS
     Dosage: 1000 MG EVERY MORNING; 500 MG EVERY NIGHT.
  11. CELEBREX [Concomitant]
  12. ACETAMINOPHEN [Concomitant]
     Dosage: EVERY 4-6 HOURS
  13. DIPHENHYDRAMINE HCL [Concomitant]
  14. DIPHENHYDRAMINE HCL [Concomitant]
  15. DIPHENHYDRAMINE HCL [Concomitant]
     Indication: PREMEDICATION
     Dosage: HS
  16. POTASSIUM CHLORIDE [Concomitant]
  17. ATENOLOL [Concomitant]
  18. ATENOLOL [Concomitant]
  19. VANCENASE [Concomitant]
  20. ARTIFICIAL TEARS [Concomitant]
  21. FERROUS GLUCONATE [Concomitant]
  22. OSCAL-D [Concomitant]
  23. NITROGLYCERIN [Concomitant]
  24. ISOSORBIDE [Concomitant]
  25. ISOSORBIDE [Concomitant]
  26. HYDRALAZINE [Concomitant]
  27. HYDRALAZINE [Concomitant]
  28. LASIX [Concomitant]
  29. LASIX [Concomitant]
  30. SIMVASTATIN [Concomitant]
  31. ALBUTEROL [Concomitant]
     Route: 055
  32. SPIRONOLACTONE [Concomitant]
     Route: 048
  33. DIGOXIN [Concomitant]
     Dosage: EVERY OTHER DAY

REACTIONS (15)
  - ACUTE MYOCARDIAL INFARCTION [None]
  - ANAEMIA [None]
  - AORTIC VALVE STENOSIS [None]
  - CARDIAC FAILURE CONGESTIVE [None]
  - DEEP VEIN THROMBOSIS [None]
  - ENTEROCOCCAL INFECTION [None]
  - GASTROINTESTINAL HAEMORRHAGE [None]
  - INFECTION [None]
  - PLEURAL EFFUSION [None]
  - PNEUMONIA [None]
  - PULMONARY OEDEMA [None]
  - RENAL FAILURE CHRONIC [None]
  - RENAL HAEMATOMA [None]
  - URINARY TRACT INFECTION [None]
  - UROSEPSIS [None]
